FAERS Safety Report 7649616-X (Version None)
Quarter: 2011Q3

REPORT INFORMATION
  Report Type: 
  Country: None (occurrence: None)
  Receive Date: 20110802
  Receipt Date: 20110727
  Transmission Date: 20111222
  Serious: Yes (Other)
  Sender: FDA-Public Use
  Company Number: US-BAYER-200934431NA

PATIENT
  Sex: Female

DRUGS (21)
  1. TRASYLOL [Suspect]
     Indication: CORONARY ARTERY BYPASS
  2. HEPARIN [Concomitant]
     Dosage: 60500 UNITS
     Route: 042
     Dates: start: 20020307, end: 20020307
  3. ACETYLSALICYLIC ACID SRT [Concomitant]
     Dosage: 325MG EVERY OTHER DAY
     Route: 048
  4. LASIX [Concomitant]
     Dosage: 20MG
     Route: 042
     Dates: start: 20020307, end: 20020307
  5. ATENOLOL [Concomitant]
     Dosage: 50 MG, QD
     Route: 048
  6. LIPITOR [Concomitant]
     Dosage: 10 MG, QD
     Route: 048
  7. FENTANYL [Concomitant]
     Dosage: UNK
     Route: 042
     Dates: start: 20020307, end: 20020307
  8. BENADRYL [Concomitant]
     Dosage: 50MG
     Route: 042
     Dates: start: 20020307, end: 20020307
  9. LOVENOX [Concomitant]
     Route: 048
  10. PROTAMINE [Concomitant]
     Dosage: 150MG
     Route: 042
     Dates: start: 20020307, end: 20020307
  11. TYLENOL REGULAR [Concomitant]
     Dosage: PRN
     Route: 048
  12. NITROGLYCERIN [Concomitant]
     Dosage: PRN
     Route: 048
  13. FRESH FROZEN PLASMA [Concomitant]
     Dosage: 2 U, UNK
     Dates: start: 20020307
  14. TRASYLOL [Suspect]
     Indication: CORONARY REVASCULARISATION
     Dosage: TEST DOSE 1ML, LOADING DOSE 100CC, FOLLOWED BY 25CC/HR INFUSION
     Route: 042
     Dates: start: 20020307, end: 20020307
  15. INSULIN [Concomitant]
     Dosage: 20 UNITS
     Route: 042
     Dates: start: 20020307, end: 20020307
  16. RED BLOOD CELLS [Concomitant]
     Dosage: 7 U, UNK
     Dates: start: 20020307
  17. TRASYLOL [Suspect]
     Indication: MITRAL VALVE REPAIR
     Dosage: UNK
     Dates: end: 20020308
  18. DOBUTAMINE HCL [Concomitant]
     Dosage: DRIP
     Route: 042
     Dates: start: 20020307, end: 20020307
  19. COZAAR [Concomitant]
     Dosage: 50 MG, QD
     Route: 048
  20. TAGAMET [Concomitant]
     Dosage: 300MG
     Route: 042
     Dates: start: 20020307, end: 20020307
  21. PRIMACOR [Concomitant]
     Dosage: DRIP
     Route: 042
     Dates: start: 20020307, end: 20020307

REACTIONS (10)
  - RENAL FAILURE [None]
  - INJURY [None]
  - RENAL IMPAIRMENT [None]
  - RENAL INJURY [None]
  - UNEVALUABLE EVENT [None]
  - ANXIETY [None]
  - EMOTIONAL DISTRESS [None]
  - STRESS [None]
  - PAIN [None]
  - FEAR [None]
